FAERS Safety Report 24778933 (Version 2)
Quarter: 2025Q1

REPORT INFORMATION
  Report Type: Report from Study
  Country: CA (occurrence: CA)
  Receive Date: 20241226
  Receipt Date: 20250121
  Transmission Date: 20250409
  Serious: No
  Sender: VERTEX
  Company Number: CA-VERTEX PHARMACEUTICALS-2024-019894

PATIENT
  Sex: Male
  Weight: 59 kg

DRUGS (24)
  1. TRIKAFTA [Suspect]
     Active Substance: ELEXACAFTOR\IVACAFTOR\TEZACAFTOR
     Indication: Cystic fibrosis
     Dosage: 100MG ELEXACAFTOR/50MG TEZACAFTOR/ 75MG IVACAFTOR ONCE DAILY
     Route: 048
     Dates: start: 20211109
  2. CALCIUM\VITAMIN D [Concomitant]
     Active Substance: CALCIUM\VITAMIN D
     Indication: Supplementation therapy
     Dosage: 500/1000 MG
     Route: 048
     Dates: start: 20190530
  3. VITAMIN E [Concomitant]
     Active Substance: .ALPHA.-TOCOPHEROL
     Indication: Supplementation therapy
     Dosage: 200 IU TID
     Route: 048
     Dates: start: 20190530
  4. ALBUTEROL [Concomitant]
     Active Substance: ALBUTEROL
     Indication: Cystic fibrosis lung
     Dosage: 100 MICROGRAM, QID
     Dates: start: 20160202
  5. SODIUM CHLORIDE [Concomitant]
     Active Substance: SODIUM CHLORIDE
     Indication: Cystic fibrosis lung
     Dosage: UNK, QD
     Dates: start: 20191118
  6. AZTREONAM [Concomitant]
     Active Substance: AZTREONAM
     Indication: Bacteraemia
     Dosage: 75 MG, TID
     Dates: start: 20170807
  7. SYMBICORT [Concomitant]
     Active Substance: BUDESONIDE\FORMOTEROL FUMARATE DIHYDRATE
     Indication: Cystic fibrosis lung
     Dosage: 400/12 MCG
     Dates: start: 20130129
  8. SYMBICORT [Concomitant]
     Active Substance: BUDESONIDE\FORMOTEROL FUMARATE DIHYDRATE
     Route: 048
  9. PULMICORT TURBUHALER [Concomitant]
     Active Substance: BUDESONIDE
     Indication: Chronic sinusitis
     Dosage: UNK, BID
     Dates: start: 20160818
  10. SODIUM BICARBONATE\SODIUM CHLORIDE [Concomitant]
     Active Substance: SODIUM BICARBONATE\SODIUM CHLORIDE
     Indication: Chronic sinusitis
     Route: 045
     Dates: start: 20160818
  11. NAPROXEN [Concomitant]
     Active Substance: NAPROXEN
     Indication: Myalgia
     Route: 048
     Dates: start: 20190120
  12. OXAZEPAM [Concomitant]
     Active Substance: OXAZEPAM
     Indication: Anxiety
     Route: 048
     Dates: start: 20160222
  13. OXAZEPAM [Concomitant]
     Active Substance: OXAZEPAM
     Indication: Insomnia
  14. LOPROX [Concomitant]
     Active Substance: CICLOPIROX\CICLOPIROX OLAMINE
     Indication: Seborrhoeic dermatitis
     Dosage: 1%, BID
     Route: 061
     Dates: start: 20230131
  15. DESONIDE [Concomitant]
     Active Substance: DESONIDE
     Indication: Seborrhoeic dermatitis
     Dosage: 0.05 % BID
     Route: 061
     Dates: start: 20230131
  16. VITAMIN K [Concomitant]
     Active Substance: PHYTONADIONE
     Indication: Supplementation therapy
     Route: 048
     Dates: start: 20221208
  17. VITAMIN D [Concomitant]
     Active Substance: VITAMIN D NOS
     Indication: Supplementation therapy
     Dosage: 1000 IU
     Route: 048
     Dates: start: 20220526
  18. CREON [Concomitant]
     Active Substance: PANCRELIPASE AMYLASE\PANCRELIPASE LIPASE\PANCRELIPASE PROTEASE
     Indication: Pancreatic failure
     Route: 048
     Dates: start: 20230831
  19. COTAZYM ECS [Concomitant]
     Indication: Pancreatic failure
     Dosage: 800000 IU, QD
     Route: 048
     Dates: start: 20230831
  20. CIPROFLOXACIN [Concomitant]
     Active Substance: CIPROFLOXACIN
     Indication: Infective pulmonary exacerbation of cystic fibrosis
     Dosage: 750 MG, BID
     Route: 048
     Dates: start: 20180228
  21. MINOCIN [Concomitant]
     Active Substance: MINOCYCLINE HYDROCHLORIDE
     Indication: Infective pulmonary exacerbation of cystic fibrosis
     Dosage: PRN
     Route: 048
     Dates: start: 20170914
  22. SERTRALINE [Concomitant]
     Active Substance: SERTRALINE HYDROCHLORIDE
     Indication: Anxiety
     Dosage: 50 MG, QD
     Route: 048
     Dates: start: 202311
  23. RHINOCORT [Concomitant]
     Active Substance: BUDESONIDE
     Indication: Nasal polyps
     Dosage: 128 MCG, TID
     Route: 045
     Dates: start: 20240229
  24. RHINOCORT [Concomitant]
     Active Substance: BUDESONIDE
     Indication: Chronic sinusitis

REACTIONS (3)
  - Brain fog [Not Recovered/Not Resolved]
  - Psychomotor retardation [Not Recovered/Not Resolved]
  - Depressed mood [Not Recovered/Not Resolved]

NARRATIVE: CASE EVENT DATE: 20211101
